FAERS Safety Report 5304059-9 (Version None)
Quarter: 2007Q1

REPORT INFORMATION
  Report Type: 
  Country: None (occurrence: None)
  Receive Date: 20070201
  Receipt Date: 20061110
  Transmission Date: 20070707
  Serious: No
  Sender: FDA-Public Use
  Company Number: 2006PV025107

PATIENT
  Age: 63 Year
  Sex: Female

DRUGS (1)
  1. BYETTA [Suspect]
     Indication: DRUG USE FOR UNKNOWN INDICATION
     Dosage: 10 MCG;SC
     Route: 058

REACTIONS (4)
  - ABDOMINAL PAIN [None]
  - BLOOD AMYLASE INCREASED [None]
  - LIPASE INCREASED [None]
  - NAUSEA [None]
